FAERS Safety Report 8308642-8 (Version None)
Quarter: 2012Q2

REPORT INFORMATION
  Report Type: 
  Country: None (occurrence: None)
  Receive Date: 20120424
  Receipt Date: 20120418
  Transmission Date: 20120825
  Serious: Yes (Other)
  Sender: FDA-Public Use
  Company Number: US-NAPPMUNDI-USA-2012-0083165

PATIENT
  Sex: Female
  Weight: 72.562 kg

DRUGS (1)
  1. OXYCONTIN [Suspect]
     Indication: PAIN
     Dosage: 80 MG, TID
     Route: 048

REACTIONS (3)
  - HELICOBACTER INFECTION [None]
  - PANCREATIC MASS [None]
  - ABDOMINAL DISCOMFORT [None]
